FAERS Safety Report 16552018 (Version 3)
Quarter: 2019Q3

REPORT INFORMATION
  Report Type: Spontaneous
  Country: US (occurrence: US)
  Receive Date: 20190710
  Receipt Date: 20190912
  Transmission Date: 20191004
  Serious: No
  Sender: FDA-Public Use
  Company Number: US-GLAXOSMITHKLINE-US2019122998

PATIENT
  Sex: Female

DRUGS (3)
  1. ANORO ELLIPTA [Suspect]
     Active Substance: UMECLIDINIUM BROMIDE\VILANTEROL TRIFENATATE
     Indication: PRODUCT USED FOR UNKNOWN INDICATION
     Dosage: 1 PUFF(S), QD
     Route: 055
     Dates: start: 201905
  2. COMBIVENT INHALATION POWDER [Concomitant]
     Indication: PRODUCT USED FOR UNKNOWN INDICATION
     Dosage: UNK
  3. ANORO ELLIPTA [Suspect]
     Active Substance: UMECLIDINIUM BROMIDE\VILANTEROL TRIFENATATE
     Dosage: 1 PUFF(S), QD

REACTIONS (13)
  - Sneezing [Unknown]
  - Nasal congestion [Unknown]
  - Gastrooesophageal reflux disease [Recovered/Resolved]
  - Abdominal pain upper [Unknown]
  - Drug hypersensitivity [Unknown]
  - Mucosal discolouration [Unknown]
  - Pyrexia [Unknown]
  - Hyperhidrosis [Unknown]
  - Dyspnoea [Recovered/Resolved]
  - Eye infection [Not Recovered/Not Resolved]
  - Nasopharyngitis [Recovered/Resolved]
  - Cough [Recovered/Resolved]
  - Flatulence [Recovered/Resolved]
